FAERS Safety Report 4788266-X (Version None)
Quarter: 2005Q4

REPORT INFORMATION
  Report Type: 
  Country: None (occurrence: None)
  Receive Date: 20051003
  Receipt Date: 20050912
  Transmission Date: 20060501
  Serious: Yes (Hospitalization)
  Sender: FDA-Public Use
  Company Number: 2005-131607-NL

PATIENT
  Age: 77 Year
  Sex: Male

DRUGS (8)
  1. MIRTAZAPINE [Suspect]
     Dosage: SEE IMAGE, ORAL
     Route: 048
  2. PREDNISOLONE [Concomitant]
  3. TRIMETHOPRIM [Concomitant]
  4. ZOLPIDEM TARTRATE [Concomitant]
  5. LACTULOSE [Concomitant]
  6. OXAZEPAM [Concomitant]
  7. ACETAMINOPHEN [Concomitant]
  8. CITALOPRAM HYDROBROMIDE [Concomitant]

REACTIONS (3)
  - DYSPHAGIA [None]
  - OESOPHAGITIS [None]
  - WEIGHT DECREASED [None]
